FAERS Safety Report 8433828-1 (Version None)
Quarter: 2012Q2

REPORT INFORMATION
  Report Type: 
  Country: None (occurrence: None)
  Receive Date: 20120323
  Receipt Date: 20110620
  Transmission Date: 20120825
  Serious: Yes (Other)
  Sender: FDA-Public Use
  Company Number: 163-21880-111062941

PATIENT
  Age: 79 Year
  Sex: Female

DRUGS (2)
  1. EXJADE (DEFERASIROX)(250 MILLIGRAM, TABLETS) [Concomitant]
  2. REVLIMID [Suspect]
     Indication: MYELODYSPLASTIC SYNDROME
     Dosage: 5 MG, 1 IN 1 D, PO
     Route: 048
     Dates: start: 20110207

REACTIONS (1)
  - BLINDNESS [None]
